FAERS Safety Report 8431417-6 (Version None)
Quarter: 2012Q2

REPORT INFORMATION
  Report Type: 
  Country: None (occurrence: None)
  Receive Date: 20120605
  Receipt Date: 20120521
  Transmission Date: 20120825
  Serious: Yes (Hospitalization)
  Sender: FDA-Public Use
  Company Number: TPA2012A03095

PATIENT
  Age: 60 Year
  Sex: Female

DRUGS (2)
  1. PERINODOPRIL [Concomitant]
  2. ADENURIC (FEBUXOSTAT) [Suspect]
     Indication: GOUT
     Dosage: 80 MG (80 MG, 1 IN 1 D), ORAL
     Route: 048
     Dates: start: 20110506, end: 20111208

REACTIONS (4)
  - ARRHYTHMIA [None]
  - ACUTE MYOCARDIAL INFARCTION [None]
  - CARDIAC ARREST [None]
  - RENAL IMPAIRMENT [None]
